FAERS Safety Report 21129058 (Version 1)
Quarter: 2022Q3

REPORT INFORMATION
  Report Type: Spontaneous
  Country: CN (occurrence: CN)
  Receive Date: 20220725
  Receipt Date: 20220725
  Transmission Date: 20221027
  Serious: Yes (Hospitalization, Other)
  Sender: FDA-Public Use
  Company Number: CN-PFIZER INC-PV202200026176

PATIENT
  Sex: Male

DRUGS (10)
  1. AVIBACTAM SODIUM\CEFTAZIDIME [Suspect]
     Active Substance: AVIBACTAM SODIUM\CEFTAZIDIME
     Indication: Pneumonia
     Dosage: 1.25 G, Q8HR
     Route: 041
     Dates: start: 20220602
  2. BACILLUS LICHENIFORMIS CAPSULE,LIVE [Concomitant]
     Indication: Therapeutic procedure
     Dosage: 0.5 G, TID
     Route: 048
     Dates: start: 20220524, end: 20220608
  3. BENSERAZIDE HYDROCHLORIDE\LEVODOPA [Concomitant]
     Active Substance: BENSERAZIDE HYDROCHLORIDE\LEVODOPA
     Indication: Parkinson^s disease
     Dosage: 0.125 G, QD
     Route: 048
     Dates: start: 20220524, end: 20220608
  4. PANTOPRAZOLE SODIUM [Concomitant]
     Active Substance: PANTOPRAZOLE SODIUM
     Indication: Gastrooesophageal reflux disease
     Dosage: 40 MG, QD
     Route: 041
     Dates: start: 20220526, end: 20220608
  5. PANTOPRAZOLE SODIUM [Concomitant]
     Active Substance: PANTOPRAZOLE SODIUM
     Indication: Therapeutic procedure
  6. THYMALFASIN [Concomitant]
     Active Substance: THYMALFASIN
     Indication: Therapeutic procedure
     Dosage: 1.6 MG, TID
     Route: 058
     Dates: start: 20220524, end: 20220608
  7. REBAMIPIDE [Concomitant]
     Active Substance: REBAMIPIDE
     Indication: Therapeutic procedure
     Dosage: 0.1 G, TID
     Route: 048
     Dates: start: 20220524, end: 20220608
  8. SHENG XUE BAO [Concomitant]
     Indication: Anaemia
     Dosage: 15 ML, TID
     Route: 048
     Dates: start: 20220524, end: 20220608
  9. FUDOSTEINE [Concomitant]
     Active Substance: FUDOSTEINE
     Indication: Productive cough
     Dosage: 0.4 G, TID
     Route: 048
     Dates: start: 20220524, end: 20220608
  10. FENOFIBRATE [Concomitant]
     Active Substance: FENOFIBRATE
     Indication: Lipids abnormal
     Dosage: 0.2 G, QD
     Route: 048
     Dates: start: 20220524, end: 20220608

REACTIONS (1)
  - Drug-induced liver injury [Not Recovered/Not Resolved]

NARRATIVE: CASE EVENT DATE: 20220603
